FAERS Safety Report 15447899 (Version 3)
Quarter: 2018Q4

REPORT INFORMATION
  Report Type: Spontaneous
  Country: NL (occurrence: NL)
  Receive Date: 20180928
  Receipt Date: 20181029
  Transmission Date: 20190204
  Serious: Yes (Hospitalization, Other)
  Sender: FDA-Public Use
  Company Number: PHHY2018NL103229

PATIENT
  Age: 46 Year
  Sex: Male

DRUGS (7)
  1. CYTARABINE. [Suspect]
     Active Substance: CYTARABINE
     Indication: CHRONIC MYELOID LEUKAEMIA
     Route: 037
  2. DASATINIB. [Suspect]
     Active Substance: DASATINIB
     Indication: BLAST CRISIS IN MYELOGENOUS LEUKAEMIA
     Dosage: 140 MG, QD
     Route: 048
  3. DASATINIB. [Suspect]
     Active Substance: DASATINIB
     Dosage: 100 MG, QD
     Route: 048
  4. NILOTINIB [Suspect]
     Active Substance: NILOTINIB
     Indication: BLAST CRISIS IN MYELOGENOUS LEUKAEMIA
     Dosage: 400 MG, BID
     Route: 065
  5. CYTARABINE. [Suspect]
     Active Substance: CYTARABINE
     Indication: BLAST CRISIS IN MYELOGENOUS LEUKAEMIA
  6. DASATINIB. [Suspect]
     Active Substance: DASATINIB
     Indication: CHRONIC MYELOID LEUKAEMIA
     Dosage: 180 MG, QD
     Route: 048
  7. NILOTINIB [Suspect]
     Active Substance: NILOTINIB
     Indication: CHRONIC MYELOID LEUKAEMIA

REACTIONS (9)
  - Recurrent cancer [Recovered/Resolved]
  - Headache [Recovered/Resolved]
  - Blast crisis in myelogenous leukaemia [Recovered/Resolved]
  - Pleural effusion [Unknown]
  - Arteriospasm coronary [Unknown]
  - Malignant neoplasm progression [Unknown]
  - Acute myocardial infarction [Unknown]
  - Angina pectoris [Recovering/Resolving]
  - Blast crisis in myelogenous leukaemia [Recovered/Resolved]

NARRATIVE: CASE EVENT DATE: 201312
